FAERS Safety Report 24722202 (Version 5)
Quarter: 2025Q1

REPORT INFORMATION
  Report Type: Spontaneous
  Country: US (occurrence: US)
  Receive Date: 20241211
  Receipt Date: 20250214
  Transmission Date: 20250408
  Serious: Yes (Hospitalization)
  Sender: SAREPTA THERAPEUTICS
  Company Number: US-SAREPTA THERAPEUTICS INC.-SRP2024-005333

PATIENT
  Age: 12 Year
  Sex: Male
  Weight: 48.4 kg

DRUGS (3)
  1. ELEVIDYS [Suspect]
     Active Substance: DELANDISTROGENE MOXEPARVOVEC-ROKL
     Indication: Duchenne muscular dystrophy
     Dates: start: 20241010, end: 20241010
  2. PREDNISONE [Concomitant]
     Active Substance: PREDNISONE
     Indication: Immunosuppression
     Dates: start: 20241009
  3. PREDNISONE [Concomitant]
     Active Substance: PREDNISONE
     Dates: start: 20241012

REACTIONS (7)
  - Respiratory failure [Unknown]
  - Atelectasis [Unknown]
  - Dehydration [Unknown]
  - Immune-mediated myositis [Recovered/Resolved with Sequelae]
  - Pyrexia [Unknown]
  - Aspartate aminotransferase increased [Recovered/Resolved]
  - Alanine aminotransferase increased [Recovered/Resolved]

NARRATIVE: CASE EVENT DATE: 20241121
